FAERS Safety Report 7226668-2 (Version None)
Quarter: 2011Q1

REPORT INFORMATION
  Report Type: 
  Country: None (occurrence: None)
  Receive Date: 20110110
  Receipt Date: 20110110
  Transmission Date: 20110831
  Serious: Yes (Other)
  Sender: FDA-Public Use
  Company Number: None

PATIENT
  Age: 71 Year
  Sex: Male

DRUGS (2)
  1. INFED [Suspect]
     Indication: IRON DEFICIENCY ANAEMIA
     Dosage: 25MG TEST DOSE IV (1ST DOSE)
     Route: 042
  2. INFED [Suspect]
     Indication: NEPHROGENIC ANAEMIA
     Dosage: 25MG TEST DOSE IV (1ST DOSE)
     Route: 042

REACTIONS (2)
  - SCRATCH [None]
  - URTICARIA [None]
